FAERS Safety Report 6051871-7 (Version None)
Quarter: 2009Q1

REPORT INFORMATION
  Report Type: 
  Country: None (occurrence: None)
  Receive Date: 20090126
  Receipt Date: 20090120
  Transmission Date: 20090719
  Serious: Yes (Other)
  Sender: FDA-Public Use
  Company Number: CA-JNJCH-2009000583

PATIENT
  Age: 23 Year
  Sex: Female

DRUGS (4)
  1. BENYLIN DM SYRUP [Suspect]
     Indication: COUGH
     Dosage: TEXT:2 DOSES
     Route: 048
  2. LAMOTRIGINE [Concomitant]
     Indication: EPILEPSY
     Dosage: TEXT:100 MG 2 PILLS 2X DAY
     Route: 048
     Dates: start: 20030101
  3. CLONAZEPAM [Concomitant]
     Indication: EPILEPSY
     Dosage: TEXT:0.5 MG 2 PILLS 2X DAY
     Route: 048
     Dates: start: 20030101
  4. TOPIRAMATE [Concomitant]
     Indication: EPILEPSY
     Dosage: TEXT:100 MG 1 PILL 2X DAY
     Route: 048
     Dates: start: 20030101

REACTIONS (1)
  - PETIT MAL EPILEPSY [None]
